FAERS Safety Report 17299469 (Version 1)
Quarter: 2020Q1

REPORT INFORMATION
  Report Type: Spontaneous
  Country: US (occurrence: US)
  Receive Date: 20200121
  Receipt Date: 20200121
  Transmission Date: 20200409
  Serious: No
  Sender: FDA-Public Use
  Company Number: None

PATIENT
  Age: 43 Year
  Sex: Female
  Weight: 78.75 kg

DRUGS (7)
  1. ATENOLOL. [Concomitant]
     Active Substance: ATENOLOL
  2. HAIT SKIN AND NAILS [Concomitant]
  3. LORATADINE. [Concomitant]
     Active Substance: LORATADINE
  4. OCREVUS [Suspect]
     Active Substance: OCRELIZUMAB
     Indication: MULTIPLE SCLEROSIS
     Dosage: ?          QUANTITY:1 600 MG INFUSION;OTHER FREQUENCY:EVERY 6 MONTHS;OTHER ROUTE:INFUSION?
     Dates: start: 20190729
  5. VITAMIN D3 [Concomitant]
     Active Substance: CHOLECALCIFEROL
  6. POTASSIUM CHLORIDE. [Concomitant]
     Active Substance: POTASSIUM CHLORIDE
  7. APRI [Concomitant]
     Active Substance: DESOGESTREL\ETHINYL ESTRADIOL

REACTIONS (1)
  - Alopecia [None]

NARRATIVE: CASE EVENT DATE: 20190813
